FAERS Safety Report 11470734 (Version 2)
Quarter: 2015Q3

REPORT INFORMATION
  Report Type: Spontaneous
  Country: US (occurrence: US)
  Receive Date: 20150903
  Receipt Date: 20150903
  Transmission Date: 20151125
  Serious: No
  Sender: FDA-Public Use
  Company Number: US-ELI_LILLY_AND_COMPANY-US201108001646

PATIENT
  Age: 69 Year
  Sex: Male

DRUGS (7)
  1. CYMBALTA [Suspect]
     Active Substance: DULOXETINE HYDROCHLORIDE
     Indication: OSTEOARTHRITIS
     Dosage: 30 MG, UNK
  2. LISINOPRIL                              /USA/ [Concomitant]
     Active Substance: LISINOPRIL
     Indication: HYPERTENSION
  3. RELAFEN [Concomitant]
     Active Substance: NABUMETONE
     Indication: ANTIINFLAMMATORY THERAPY
  4. CYMBALTA [Suspect]
     Active Substance: DULOXETINE HYDROCHLORIDE
     Dosage: 30 MG, QD
     Dates: start: 20110728, end: 20110801
  5. ATENOLOL. [Concomitant]
     Active Substance: ATENOLOL
     Indication: HEART RATE INCREASED
     Dosage: UNK, PRN
  6. OTHER CARDIAC PREPARATIONS [Concomitant]
     Active Substance: UNSPECIFIED INGREDIENT
  7. CYMBALTA [Suspect]
     Active Substance: DULOXETINE HYDROCHLORIDE
     Dosage: 60 MG, QD
     Dates: start: 20110802

REACTIONS (8)
  - Intentional product misuse [Recovered/Resolved]
  - Decreased appetite [Not Recovered/Not Resolved]
  - Urine flow decreased [Not Recovered/Not Resolved]
  - Pain [Unknown]
  - Dysuria [Not Recovered/Not Resolved]
  - Sexual dysfunction [Unknown]
  - Ejaculation failure [Not Recovered/Not Resolved]
  - Dysgeusia [Not Recovered/Not Resolved]
